FAERS Safety Report 9130971 (Version 1)
Quarter: 2013Q1

REPORT INFORMATION
  Report Type: Spontaneous
  Country: JP (occurrence: JP)
  Receive Date: 20130301
  Receipt Date: 20130301
  Transmission Date: 20140127
  Serious: Yes (Other)
  Sender: FDA-Public Use
  Company Number: JP-JNJFOC-20130214490

PATIENT
  Age: 85 Year
  Sex: Male

DRUGS (1)
  1. ITRIZOLE [Suspect]
     Indication: BRONCHOPULMONARY ASPERGILLOSIS
     Route: 048
     Dates: start: 201010

REACTIONS (2)
  - Respiratory failure [Recovered/Resolved]
  - Bronchopulmonary aspergillosis [Unknown]
